FAERS Safety Report 19859991 (Version 2)
Quarter: 2022Q1

REPORT INFORMATION
  Report Type: Spontaneous
  Country: US (occurrence: US)
  Receive Date: 20210921
  Receipt Date: 20220204
  Transmission Date: 20220423
  Serious: Yes (Other)
  Sender: FDA-Public Use
  Company Number: US-CELLTRION INC.-2020US028454

PATIENT

DRUGS (1)
  1. INFLECTRA [Suspect]
     Active Substance: INFLIXIMAB-DYYB
     Indication: Hidradenitis
     Dosage: 500 MG EVERY 6 WEEKS

REACTIONS (10)
  - Pyoderma gangrenosum [Unknown]
  - Crohn^s disease [Unknown]
  - Osteoarthritis [Unknown]
  - Arthritis [Unknown]
  - Off label use [Unknown]
  - Off label use [Unknown]
  - Off label use [Unknown]
  - Product prescribing issue [Unknown]
  - Product dose omission issue [Unknown]
  - Product availability issue [Unknown]
